FAERS Safety Report 22022922 (Version 2)
Quarter: 2023Q1

REPORT INFORMATION
  Report Type: Spontaneous
  Country: US (occurrence: US)
  Receive Date: 20230222
  Receipt Date: 20230306
  Transmission Date: 20230417
  Serious: Yes (Other)
  Sender: FDA-Public Use
  Company Number: US-PRINSTON PHARMACEUTICAL INC.-2023PRN00061

PATIENT
  Sex: Female
  Weight: 69.388 kg

DRUGS (11)
  1. CLONAZEPAM [Suspect]
     Active Substance: CLONAZEPAM
     Indication: Anxiety
     Dosage: 2 MG, 3X/DAY, AS NEEDED
     Route: 048
  2. CLONAZEPAM [Suspect]
     Active Substance: CLONAZEPAM
     Indication: Ill-defined disorder
  3. CLONAZEPAM [Suspect]
     Active Substance: CLONAZEPAM
     Indication: Anxiety
     Dosage: 1 MG, 2X/DAY, AS NEEDED
     Route: 048
  4. CLONAZEPAM [Suspect]
     Active Substance: CLONAZEPAM
     Dosage: 2 MG, 3X/DAY, AS NEEDED
     Route: 048
     Dates: start: 2023
  5. CLONAZEPAM [Suspect]
     Active Substance: CLONAZEPAM
     Dosage: 2X/WEEK
  6. SYNTHROID [Concomitant]
     Active Substance: LEVOTHYROXINE SODIUM
     Dosage: UNK
  7. OMEPRAZOLE [Concomitant]
     Active Substance: OMEPRAZOLE
     Dosage: UNK
  8. UNSPECIFIED INGREDIENT [Concomitant]
     Active Substance: UNSPECIFIED INGREDIENT
     Dosage: UNK
  9. ESTROGENS [Concomitant]
     Active Substance: ESTROGENS
     Dosage: UNK
     Dates: end: 2018
  10. ESTROGENS [Concomitant]
     Active Substance: ESTROGENS
     Dosage: UNK
     Dates: start: 2022
  11. CINNAMON\HERBALS [Concomitant]
     Active Substance: CINNAMON\HERBALS

REACTIONS (9)
  - Thyroid cancer [Recovered/Resolved]
  - Menopausal symptoms [Recovering/Resolving]
  - Feeling abnormal [Recovered/Resolved]
  - Depression [Not Recovered/Not Resolved]
  - Unevaluable event [Unknown]
  - Mood swings [Not Recovered/Not Resolved]
  - Dizziness [Recovered/Resolved]
  - Dysphonia [Recovered/Resolved]
  - Off label use [Not Recovered/Not Resolved]

NARRATIVE: CASE EVENT DATE: 20120101
